FAERS Safety Report 12313348 (Version 1)
Quarter: 2016Q2

REPORT INFORMATION
  Report Type: Spontaneous
  Country: US (occurrence: None)
  Receive Date: 20160427
  Receipt Date: 20160427
  Transmission Date: 20160815
  Serious: Yes (Other)
  Sender: FDA-Public Use
  Company Number: None

PATIENT
  Age: 65 Year
  Sex: Female
  Weight: 72.58 kg

DRUGS (7)
  1. CARBOPLATIN. [Suspect]
     Active Substance: CARBOPLATIN
  2. AROMATASE INHIBITOR [Concomitant]
     Active Substance: UNSPECIFIED INGREDIENT
  3. TRASTUZUMAB [Suspect]
     Active Substance: TRASTUZUMAB
  4. PERTUZUMAB [Suspect]
     Active Substance: PERTUZUMAB
  5. CALCIUM CARBONATE. [Concomitant]
     Active Substance: CALCIUM CARBONATE
  6. VITAMIN D [Concomitant]
     Active Substance: CHOLECALCIFEROL
  7. DOCTAXEL [Suspect]
     Active Substance: DOCETAXEL
     Indication: BREAST CANCER

REACTIONS (1)
  - Alopecia [None]
